FAERS Safety Report 4627027-9 (Version None)
Quarter: 2005Q2

REPORT INFORMATION
  Report Type: 
  Country: None (occurrence: None)
  Receive Date: 20050405
  Receipt Date: 20050324
  Transmission Date: 20051028
  Serious: Yes (Other)
  Sender: FDA-Public Use
  Company Number: FR-BRISTOL-MYERS SQUIBB COMPANY-12910808

PATIENT
  Age: 10 Year
  Sex: Male

DRUGS (1)
  1. CORGARD [Suspect]
     Indication: ELECTROCARDIOGRAM QT PROLONGED
     Route: 048
     Dates: start: 20040601

REACTIONS (2)
  - ANTINUCLEAR ANTIBODY POSITIVE [None]
  - COLITIS ULCERATIVE [None]
